FAERS Safety Report 21767699 (Version 2)
Quarter: 2023Q1

REPORT INFORMATION
  Report Type: Spontaneous
  Country: IT (occurrence: IT)
  Receive Date: 20221222
  Receipt Date: 20230102
  Transmission Date: 20230417
  Serious: Yes (Life-Threatening, Hospitalization)
  Sender: FDA-Public Use
  Company Number: IT-TEVA-2022-IT-2838330

PATIENT
  Age: 59 Year
  Sex: Male

DRUGS (7)
  1. AZITHROMYCIN [Suspect]
     Active Substance: AZITHROMYCIN
     Indication: COVID-19
     Route: 065
     Dates: start: 2020
  2. CEFTRIAXONE [Suspect]
     Active Substance: CEFTRIAXONE
     Indication: COVID-19
     Route: 065
     Dates: start: 2020
  3. DEXAMETHASONE [Suspect]
     Active Substance: DEXAMETHASONE
     Indication: COVID-19
     Route: 065
     Dates: start: 2020
  4. ENOXAPARIN [Suspect]
     Active Substance: ENOXAPARIN
     Indication: COVID-19
     Route: 065
     Dates: start: 2020
  5. AVIBACTAM SODIUM\CEFTAZIDIME [Suspect]
     Active Substance: AVIBACTAM SODIUM\CEFTAZIDIME
     Indication: Klebsiella infection
     Dosage: 7.5 GRAM DAILY; THREE TIMES A DAY
     Route: 065
     Dates: start: 2020, end: 2020
  6. LINEZOLID [Concomitant]
     Active Substance: LINEZOLID
     Indication: Evidence based treatment
     Dosage: 1200 MILLIGRAM DAILY;
     Route: 065
     Dates: start: 2020
  7. PIPERACILLIN SODIUM\TAZOBACTAM SODIUM [Concomitant]
     Active Substance: PIPERACILLIN SODIUM\TAZOBACTAM SODIUM
     Indication: Evidence based treatment
     Dosage: 18 GRAM DAILY; FOUR TIMES A DAY
     Route: 065
     Dates: start: 2020

REACTIONS (3)
  - Drug ineffective [Unknown]
  - Drug ineffective for unapproved indication [Unknown]
  - Off label use [Unknown]

NARRATIVE: CASE EVENT DATE: 20200101
